FAERS Safety Report 25337421 (Version 1)
Quarter: 2025Q2

REPORT INFORMATION
  Report Type: Spontaneous
  Country: US (occurrence: None)
  Receive Date: 20250520
  Receipt Date: 20250520
  Transmission Date: 20250717
  Serious: No
  Sender: FDA-CTU
  Company Number: None

PATIENT
  Age: 40 Year
  Sex: Female

DRUGS (1)
  1. HADLIMA [Suspect]
     Active Substance: ADALIMUMAB-BWWD
     Indication: Psoriasis
     Dosage: FREQUENCY : DAILY;?
     Route: 058

REACTIONS (4)
  - Unevaluable event [None]
  - Therapy change [None]
  - Pyrexia [None]
  - Peripheral swelling [None]
